FAERS Safety Report 7393199 (Version 2)
Quarter: 2012Q4

REPORT INFORMATION
  Report Type: 
  Country: DE (occurrence: DE)
  Receive Date: 20100506
  Receipt Date: 20121004
  Transmission Date: 20130627
  Serious: Yes (Death, Life-Threatening, Hospitalization)
  Sender: FDA-Public Use
  Company Number: DE-RANBAXY-2010RR-33455

PATIENT
  Age: 22 Year
  Sex: Female
  Weight: 57 kg

DRUGS (6)
  1. IBUPROFEN [Suspect]
     Indication: PAIN
     Dosage: 400 mg, qd
     Route: 048
     Dates: start: 20090121, end: 20090130
  2. PANTOZOL [Suspect]
     Indication: PROPHYLAXIS AGAINST GASTROINTESTINAL ULCER
     Dosage: 40 mg, qd
     Route: 048
     Dates: start: 20090121, end: 20090210
  3. CLEXANE [Suspect]
     Indication: THROMBOSIS PROPHYLAXIS
     Dosage: 0.4 mg, qd
     Route: 058
     Dates: start: 20090223, end: 20090227
  4. OXYGESIC [Suspect]
     Indication: PAIN
     Dosage: 10 mg, tid
     Route: 048
     Dates: start: 20090130, end: 20090210
  5. VOLTAREN [Suspect]
     Indication: PAIN
     Dosage: 50 mg, bid
     Route: 054
     Dates: start: 20090130, end: 20090210
  6. BERLOSIN [Concomitant]
     Indication: PAIN
     Dosage: 500 mg, qd
     Route: 048
     Dates: start: 20090121, end: 20090130

REACTIONS (3)
  - Hepatic lesion [Recovering/Resolving]
  - Hepatic failure [Recovering/Resolving]
  - Hepatosplenomegaly [Recovering/Resolving]
